FAERS Safety Report 18992315 (Version 2)
Quarter: 2021Q1

REPORT INFORMATION
  Report Type: Spontaneous
  Country: AU (occurrence: AU)
  Receive Date: 20210310
  Receipt Date: 20210325
  Transmission Date: 20210420
  Serious: Yes (Other)
  Sender: FDA-Public Use
  Company Number: AU-BAUSCH-BL-2021-007299

PATIENT
  Age: 59 Year
  Sex: Female

DRUGS (10)
  1. VENTOLIN [Concomitant]
     Active Substance: ALBUTEROL SULFATE
     Indication: NOCTURNAL DYSPNOEA
     Dosage: INHALER
     Route: 045
  2. VENTOLIN [Concomitant]
     Active Substance: ALBUTEROL SULFATE
     Indication: WHEEZING
  3. BECLOMETASONE DIPROPIONATE [Concomitant]
     Active Substance: BECLOMETHASONE DIPROPIONATE
     Indication: NOCTURNAL DYSPNOEA
     Dosage: INHALER
     Route: 045
  4. PREDNISOLONE. [Suspect]
     Active Substance: PREDNISOLONE
     Indication: NOCTURNAL DYSPNOEA
     Route: 048
  5. AMINOPHYLLINE. [Concomitant]
     Active Substance: AMINOPHYLLINE
     Indication: RESPIRATORY DISTRESS
     Route: 042
  6. BECLOMETASONE DIPROPIONATE [Concomitant]
     Active Substance: BECLOMETHASONE DIPROPIONATE
     Indication: WHEEZING
  7. HYDROCORTISONE. [Suspect]
     Active Substance: HYDROCORTISONE
     Indication: RESPIRATORY DISTRESS
     Dosage: FOR THREE DAYS
     Route: 042
  8. PREDNISOLONE. [Suspect]
     Active Substance: PREDNISOLONE
     Indication: WHEEZING
  9. THEOPHYLLINE [Concomitant]
     Active Substance: THEOPHYLLINE ANHYDROUS
     Indication: WHEEZING
  10. THEOPHYLLINE [Concomitant]
     Active Substance: THEOPHYLLINE ANHYDROUS
     Indication: NOCTURNAL DYSPNOEA
     Route: 048

REACTIONS (2)
  - Schizophrenia [Recovered/Resolved]
  - Substance-induced psychotic disorder [Recovered/Resolved]
